FAERS Safety Report 8289079-7 (Version None)
Quarter: 2012Q2

REPORT INFORMATION
  Report Type: 
  Country: None (occurrence: None)
  Receive Date: 20120417
  Receipt Date: 20120406
  Transmission Date: 20120825
  Serious: Yes (Disabling)
  Sender: FDA-Public Use
  Company Number: FR-BAYER-2012-034950

PATIENT
  Age: 61 Year
  Sex: Female

DRUGS (8)
  1. SIMVASTATIN [Concomitant]
  2. AUGMENTIN '125' [Suspect]
     Indication: RHINITIS
     Dosage: UNK
  3. MOXIFLOXACIN HCL [Suspect]
     Indication: RHINITIS
     Dosage: 400 MG, QD
     Dates: start: 20111118, end: 20111125
  4. AUGMENTIN '125' [Suspect]
     Indication: BRONCHITIS
  5. COZAAR [Concomitant]
     Indication: HYPERTENSION
  6. MOXIFLOXACIN HCL [Suspect]
     Indication: BRONCHITIS
  7. METFORMIN HCL [Concomitant]
     Indication: DIABETES MELLITUS
  8. ASPIRIN [Concomitant]

REACTIONS (1)
  - ANOSMIA [None]
